FAERS Safety Report 19243302 (Version 1)
Quarter: 2021Q2

REPORT INFORMATION
  Report Type: Spontaneous
  Country: FR (occurrence: FR)
  Receive Date: 20210511
  Receipt Date: 20210511
  Transmission Date: 20210717
  Serious: Yes (Hospitalization)
  Sender: FDA-Public Use
  Company Number: FR-ROCHE-2826479

PATIENT
  Age: 21 Year
  Sex: Female

DRUGS (3)
  1. LOXAPAC [Suspect]
     Active Substance: LOXAPINE
     Indication: PRODUCT USED FOR UNKNOWN INDICATION
     Route: 042
     Dates: start: 20210203, end: 20210203
  2. VALIUM [Suspect]
     Active Substance: DIAZEPAM
     Indication: PRODUCT USED FOR UNKNOWN INDICATION
     Dosage: UNSPECIFIED
     Route: 042
     Dates: start: 20210203, end: 20210203
  3. HEROIN [Suspect]
     Active Substance: DIAMORPHINE
     Indication: PRODUCT USED FOR UNKNOWN INDICATION
     Route: 042
     Dates: start: 20210203, end: 20210203

REACTIONS (2)
  - Drug abuse [Unknown]
  - Miosis [Recovered/Resolved]

NARRATIVE: CASE EVENT DATE: 20210203
